FAERS Safety Report 22332684 (Version 1)
Quarter: 2023Q2

REPORT INFORMATION
  Report Type: Spontaneous
  Country: US (occurrence: US)
  Receive Date: 20230517
  Receipt Date: 20230517
  Transmission Date: 20230721
  Serious: No
  Sender: FDA-Public Use
  Company Number: US-TEVA-2023-US-2887428

PATIENT
  Age: 81 Year
  Sex: Male

DRUGS (1)
  1. PROVIGIL [Suspect]
     Active Substance: MODAFINIL
     Indication: Narcolepsy
     Dosage: STRENGTH: 200 MG
     Dates: start: 2012

REACTIONS (2)
  - Lethargy [Unknown]
  - Product quality issue [Unknown]

NARRATIVE: CASE EVENT DATE: 20230401
